FAERS Safety Report 22315376 (Version 3)
Quarter: 2023Q2

REPORT INFORMATION
  Report Type: Spontaneous
  Country: US (occurrence: US)
  Receive Date: 20230512
  Receipt Date: 20230621
  Transmission Date: 20230721
  Serious: No
  Sender: FDA-Public Use
  Company Number: US-PFIZER INC-202300187693

PATIENT
  Age: 57 Year
  Sex: Female
  Weight: 99.79 kg

DRUGS (2)
  1. ESTROGENS, CONJUGATED [Suspect]
     Active Substance: ESTROGENS, CONJUGATED
     Indication: Oestrogen deficiency
     Dosage: UNK
  2. CITALOPRAM [Concomitant]
     Active Substance: CITALOPRAM HYDROBROMIDE
     Indication: Anxiety
     Dosage: 20 MG, 1X/DAY
     Route: 048

REACTIONS (2)
  - Drug ineffective [Unknown]
  - Malabsorption [Unknown]
